FAERS Safety Report 12370453 (Version 1)
Quarter: 2016Q2

REPORT INFORMATION
  Report Type: Spontaneous
  Country: None (occurrence: FR)
  Receive Date: 20160516
  Receipt Date: 20160516
  Transmission Date: 20160815
  Serious: Yes (Hospitalization)
  Sender: FDA-Public Use
  Company Number: FR-TEVA-659151ISR

PATIENT
  Age: 5 Day
  Sex: Female
  Weight: 1.3 kg

DRUGS (1)
  1. PROGLYCEM [Suspect]
     Active Substance: DIAZOXIDE
     Indication: HYPOGLYCAEMIA
     Dosage: 15 MG/KG DAILY; 15MG/KG/DAY THEN DECREASE OF DOSAGE TO 8MG/KG/DAY
     Route: 048
     Dates: start: 20110119, end: 20110210

REACTIONS (1)
  - Oedema peripheral [Recovered/Resolved]

NARRATIVE: CASE EVENT DATE: 20110121
